FAERS Safety Report 11043706 (Version 1)
Quarter: 2015Q2

REPORT INFORMATION
  Report Type: Spontaneous
  Country: GB (occurrence: GB)
  Receive Date: 20150417
  Receipt Date: 20150417
  Transmission Date: 20150821
  Serious: Yes (Other)
  Sender: FDA-Public Use
  Company Number: GB-ACTAVIS-2015-07745

PATIENT
  Age: 43 Year
  Sex: Female
  Weight: 80 kg

DRUGS (2)
  1. QUETIAPINE FUMARATE (UNKNOWN) [Suspect]
     Active Substance: QUETIAPINE FUMARATE
     Indication: BIPOLAR DISORDER
     Dosage: 600 MG, DAILY
     Route: 048
  2. SERTRALINE [Concomitant]
     Active Substance: SERTRALINE HYDROCHLORIDE
     Indication: PRODUCT USED FOR UNKNOWN INDICATION
     Dosage: UNK
     Route: 065

REACTIONS (2)
  - Restless legs syndrome [Not Recovered/Not Resolved]
  - Dysuria [Not Recovered/Not Resolved]
